FAERS Safety Report 9250755 (Version 1)
Quarter: 2013Q1

REPORT INFORMATION
  Report Type: Spontaneous
  Country: US (occurrence: None)
  Receive Date: 20130305
  Receipt Date: 20130305
  Transmission Date: 20140127
  Serious: Yes (Other)
  Sender: FDA-Public Use
  Company Number: 163-21880-12082478

PATIENT
  Age: 67 Year
  Sex: Female
  Weight: 77.11 kg

DRUGS (12)
  1. REVLIMID (LENALIDOMIDE) (CAPSULES) [Suspect]
     Indication: PLASMA CELL MYELOMA
     Dosage: 5 MG, 14 IN 14 D, PO
     Dates: start: 20110401
  2. THIOCTIC ACID TROMETHAMINE [Suspect]
  3. AMLODIPINE (AMLODIPINE) [Suspect]
  4. ACETYLSALICYLIC ACID [Suspect]
  5. BENAZEPRIL (BENAZEPRIL) [Suspect]
  6. FISH OIL (FISH OIL) [Suspect]
  7. FLAX SEED [Suspect]
  8. HYDROCHLOROTHIAZIDE (HYDROCHLOROTHIAZIDE) [Suspect]
  9. METFORMIN (METFORMIN) [Suspect]
  10. VITAMINS [Suspect]
  11. OMEPRAZOLE (OMEPRAZOLE) [Suspect]
  12. VITAMIN B6 (PYRIDOXINE HYDROCHLORIDE) [Suspect]

REACTIONS (1)
  - Muscle spasms [None]
